FAERS Safety Report 5168460-9 (Version None)
Quarter: 2006Q4

REPORT INFORMATION
  Report Type: 
  Country: None (occurrence: None)
  Receive Date: 20061208
  Receipt Date: 20060103
  Transmission Date: 20070319
  Serious: Yes (Other)
  Sender: FDA-Public Use
  Company Number: NL-AMGEN-UK163488

PATIENT
  Sex: Female
  Weight: 73 kg

DRUGS (3)
  1. KINERET [Suspect]
     Indication: PRE-EXISTING DISEASE
     Route: 058
     Dates: start: 20040101, end: 20051101
  2. KINERET [Suspect]
     Route: 058
     Dates: start: 20051101
  3. KINERET [Suspect]
     Route: 058

REACTIONS (3)
  - DYSLIPIDAEMIA [None]
  - HEPATIC STEATOSIS [None]
  - OBESITY [None]
